FAERS Safety Report 4976415-X (Version None)
Quarter: 2006Q2

REPORT INFORMATION
  Report Type: 
  Country: None (occurrence: None)
  Receive Date: 20060412
  Receipt Date: 20060405
  Transmission Date: 20061013
  Serious: Yes (Other)
  Sender: FDA-Public Use
  Company Number: DSA_70666_2005

PATIENT
  Age: 76 Year
  Sex: Female
  Weight: 61.2356 kg

DRUGS (10)
  1. DARVOCET-N 100 [Suspect]
     Indication: BACK PAIN
     Dosage: 0.5 TAB QDAY PO
     Route: 048
     Dates: start: 20050528, end: 20050607
  2. DARVOCET-N 100 [Suspect]
     Indication: BACK PAIN
     Dosage: 1 TAB QDAY PO
     Route: 048
     Dates: start: 20050507, end: 20050501
  3. NEURONTIN [Suspect]
     Indication: HERPES ZOSTER
     Dosage: 1200 MG QDAY PO
     Route: 048
     Dates: start: 20050509, end: 20050615
  4. NEURONTIN [Suspect]
     Indication: PAIN
     Dosage: 1200 MG QDAY PO
     Route: 048
     Dates: start: 20050509, end: 20050615
  5. NEURONTIN [Suspect]
     Indication: HERPES ZOSTER
     Dosage: 600 MG QDAY PO
     Route: 048
     Dates: start: 20050616, end: 20050619
  6. NEURONTIN [Suspect]
     Indication: PAIN
     Dosage: 600 MG QDAY PO
     Route: 048
     Dates: start: 20050616, end: 20050619
  7. NEURONTIN [Suspect]
     Dosage: 300 MG QHS PO
     Route: 048
     Dates: start: 20050620
  8. CARDIZEM CD [Concomitant]
  9. ACYCLOVIR [Concomitant]
  10. KEFLEX [Concomitant]

REACTIONS (5)
  - ALANINE AMINOTRANSFERASE INCREASED [None]
  - ASPARTATE AMINOTRANSFERASE INCREASED [None]
  - BLOOD ALKALINE PHOSPHATASE INCREASED [None]
  - BLOOD PRESSURE SYSTOLIC INCREASED [None]
  - GAMMA-GLUTAMYLTRANSFERASE INCREASED [None]
